FAERS Safety Report 8294770-2 (Version None)
Quarter: 2012Q2

REPORT INFORMATION
  Report Type: 
  Country: None (occurrence: None)
  Receive Date: 20120418
  Receipt Date: 20120409
  Transmission Date: 20120825
  Serious: Yes (Hospitalization)
  Sender: FDA-Public Use
  Company Number: US-ASTRAZENECA-2012SE23337

PATIENT
  Age: 65 Year
  Sex: Female

DRUGS (1)
  1. NEXIUM [Suspect]
     Route: 048

REACTIONS (5)
  - DIVERTICULITIS [None]
  - GASTROINTESTINAL INFECTION [None]
  - INTENTIONAL DRUG MISUSE [None]
  - OESOPHAGEAL INFECTION [None]
  - APHAGIA [None]
